FAERS Safety Report 5711304-4 (Version None)
Quarter: 2008Q2

REPORT INFORMATION
  Report Type: 
  Country: None (occurrence: None)
  Receive Date: 20080421
  Receipt Date: 20080418
  Transmission Date: 20081010
  Serious: Yes (Other)
  Sender: FDA-Public Use
  Company Number: A0704053A

PATIENT
  Age: 17 Year
  Sex: Female

DRUGS (1)
  1. ALLI [Suspect]
     Dosage: 900MG CUMULATIVE DOSE
     Route: 048

REACTIONS (4)
  - HAEMATEMESIS [None]
  - INTENTIONAL DRUG MISUSE [None]
  - INTENTIONAL OVERDOSE [None]
  - VOMITING [None]
